FAERS Safety Report 9910349 (Version 2)
Quarter: 2014Q1

REPORT INFORMATION
  Report Type: Spontaneous
  Country: US (occurrence: US)
  Receive Date: 20140219
  Receipt Date: 20140225
  Transmission Date: 20141002
  Serious: Yes (Hospitalization)
  Sender: FDA-Public Use
  Company Number: US-BAXTER-2014BAX008393

PATIENT
  Age: 43 Year
  Sex: Female

DRUGS (3)
  1. DIANEAL LOW CALCIUM [Suspect]
     Indication: PERITONEAL DIALYSIS
     Route: 033
     Dates: start: 2011, end: 20140214
  2. DIANEAL LOW CALCIUM [Suspect]
     Route: 033
     Dates: start: 20140214
  3. DIANEAL LOW CALCIUM (ULTRABAG) [Suspect]
     Indication: PERITONEAL DIALYSIS
     Route: 033
     Dates: start: 20131217

REACTIONS (3)
  - Hypertension [Recovering/Resolving]
  - Chest pain [Recovering/Resolving]
  - Blood calcium decreased [Recovering/Resolving]
